FAERS Safety Report 25067854 (Version 2)
Quarter: 2025Q3

REPORT INFORMATION
  Report Type: Report from Study
  Country: US (occurrence: US)
  Receive Date: 20250312
  Receipt Date: 20250829
  Transmission Date: 20251021
  Serious: No
  Sender: SUNOVION
  Company Number: US-SMPA-2025SPA001842AA

PATIENT
  Age: 70 Year
  Sex: Male

DRUGS (16)
  1. ORGOVYX [Suspect]
     Active Substance: RELUGOLIX
     Indication: Prostate cancer
     Dosage: 360 MG, SINGLE
     Route: 048
  2. ORGOVYX [Suspect]
     Active Substance: RELUGOLIX
     Route: 048
  3. ABIRATERONE ACETATE [Concomitant]
     Active Substance: ABIRATERONE ACETATE
  4. ALLOPURINOL [Concomitant]
     Active Substance: ALLOPURINOL
  5. CARVEDILOL [Concomitant]
     Active Substance: CARVEDILOL
  6. COENZYME Q10 [Concomitant]
     Active Substance: DIETARY SUPPLEMENT\UBIDECARENONE
  7. FISH OIL\OMEGA-3 FATTY ACIDS [Concomitant]
     Active Substance: FISH OIL\OMEGA-3 FATTY ACIDS
  8. CRANBERRY [Concomitant]
     Active Substance: CRANBERRY
  9. VITAMINS [Concomitant]
     Active Substance: VITAMINS
  10. ELIQUIS [Concomitant]
     Active Substance: APIXABAN
  11. EZETIMIBE [Concomitant]
     Active Substance: EZETIMIBE
  12. FINASTERIDE [Concomitant]
     Active Substance: FINASTERIDE
  13. HYDROCHLOROTHIAZIDE [Concomitant]
     Active Substance: HYDROCHLOROTHIAZIDE
  14. PREDNISONE [Concomitant]
     Active Substance: PREDNISONE
  15. ROSUVASTATIN [Concomitant]
     Active Substance: ROSUVASTATIN
  16. TAMSULOSIN [Concomitant]
     Active Substance: TAMSULOSIN

REACTIONS (1)
  - Hot flush [Unknown]
